FAERS Safety Report 17211256 (Version 1)
Quarter: 2019Q4

REPORT INFORMATION
  Report Type: Spontaneous
  Country: US (occurrence: US)
  Receive Date: 20191228
  Receipt Date: 20191228
  Transmission Date: 20200122
  Serious: Yes (Hospitalization, Other)
  Sender: FDA-Public Use
  Company Number: US-BION-008459

PATIENT
  Age: 33 Year
  Sex: Female

DRUGS (1)
  1. LOPERAMIDE HYDROCHLORIDE. [Suspect]
     Active Substance: LOPERAMIDE HYDROCHLORIDE
     Dosage: 20 PILLS OF 2 MG DAILY

REACTIONS (3)
  - Cardiac failure acute [Recovered/Resolved]
  - Maternal exposure during pregnancy [Unknown]
  - Drug abuse [Unknown]
